FAERS Safety Report 9999288 (Version 1)
Quarter: 2014Q1

REPORT INFORMATION
  Report Type: Spontaneous
  Country: FR (occurrence: FR)
  Receive Date: 20140312
  Receipt Date: 20140312
  Transmission Date: 20141002
  Serious: Yes (Hospitalization)
  Sender: FDA-Public Use
  Company Number: FR-ROCHE-1362666

PATIENT
  Age: 67 Year
  Sex: Female

DRUGS (7)
  1. ROCALTROL [Suspect]
     Indication: PROPHYLAXIS
     Route: 048
     Dates: end: 20130801
  2. CALCIDIA [Interacting]
     Indication: PROPHYLAXIS
     Route: 048
     Dates: end: 20130801
  3. AVLOCARDYL [Concomitant]
     Indication: HYPERTENSION
     Route: 048
     Dates: end: 20130801
  4. LESCOL [Concomitant]
     Indication: DYSLIPIDAEMIA
     Route: 048
     Dates: end: 20130801
  5. PIASCLEDINE (FRANCE) [Concomitant]
     Route: 048
     Dates: end: 20130801
  6. EFFERALGAN [Concomitant]
     Route: 065
  7. LEVOTHYROX [Concomitant]
     Route: 065

REACTIONS (2)
  - Drug interaction [Unknown]
  - Hypercalcaemia of malignancy [Recovered/Resolved]
